FAERS Safety Report 5926098-7 (Version None)
Quarter: 2008Q4

REPORT INFORMATION
  Report Type: 
  Country: None (occurrence: None)
  Receive Date: 20081021
  Receipt Date: 20081006
  Transmission Date: 20090506
  Serious: Yes (Death, Hospitalization)
  Sender: FDA-Public Use
  Company Number: JP-ABBOTT-07P-087-0373519-00

PATIENT
  Sex: Male

DRUGS (21)
  1. KALETRA [Suspect]
     Indication: HIV INFECTION
     Route: 048
     Dates: start: 20060401, end: 20061107
  2. KALETRA [Suspect]
     Route: 048
     Dates: start: 20061108, end: 20071005
  3. KALETRA [Suspect]
     Dates: start: 20020723
  4. KALETRA [Suspect]
     Indication: HIV INFECTION
     Dosage: 800/200MG DAILY
     Route: 048
     Dates: start: 20061108, end: 20071005
  5. NORVIR [Suspect]
     Indication: HIV INFECTION
     Route: 048
     Dates: start: 20071205, end: 20080226
  6. EFAVIRENZ [Suspect]
     Indication: HIV INFECTION
     Route: 048
     Dates: start: 20010207, end: 20071005
  7. EFAVIRENZ [Suspect]
     Route: 048
     Dates: start: 20010207
  8. FLUCONAZOLE [Suspect]
     Indication: PROPHYLAXIS
     Route: 048
     Dates: start: 20060401, end: 20071004
  9. FLUCONAZOLE [Suspect]
     Indication: FUNGAL INFECTION
     Route: 048
     Dates: start: 20071112, end: 20080226
  10. SULFAMETHOXAZOLE AND TRIMETHOPRIM [Suspect]
     Indication: ANTIFUNGAL PROPHYLAXIS
     Route: 048
     Dates: start: 20060401, end: 20080226
  11. SULFAMETHOXAZOLE AND TRIMETHOPRIM [Suspect]
     Indication: PNEUMOCYSTIS JIROVECI PNEUMONIA
  12. DARUNAVIR [Suspect]
     Indication: HIV INFECTION
     Route: 048
     Dates: start: 20071205, end: 20080226
  13. BEZAFIBRATE [Concomitant]
     Indication: HYPERLIPIDAEMIA
     Route: 048
     Dates: start: 20060512, end: 20060803
  14. BERBERINE CHLORIDE HYDRATE/GERANIUM HERB EXTRACT [Concomitant]
     Indication: DIARRHOEA
     Route: 048
     Dates: start: 20071030, end: 20071116
  15. MICAFUNGIN SODIUM [Concomitant]
     Indication: FUNGAL INFECTION
     Route: 042
     Dates: start: 20071109, end: 20071111
  16. MICAFUNGIN SODIUM [Concomitant]
     Indication: PROPHYLAXIS
  17. METOCLOPRAMIDE [Concomitant]
     Indication: NAUSEA
     Route: 048
     Dates: start: 20071113, end: 20071226
  18. LOPERAMIDE HYDROCHLORIDE [Concomitant]
     Indication: DIARRHOEA
     Route: 048
     Dates: start: 20071127, end: 20071207
  19. ITRACONAZOLE [Concomitant]
     Indication: PROPHYLAXIS
     Route: 048
     Dates: start: 20080208, end: 20080220
  20. ITRACONAZOLE [Concomitant]
     Indication: FUNGAL INFECTION
  21. VANCOMYCIN HYDROCHLORIDE [Concomitant]
     Indication: STAPHYLOCOCCAL INFECTION
     Route: 042
     Dates: start: 20080224, end: 20080306

REACTIONS (22)
  - ASCITES [None]
  - BLOOD ALKALINE PHOSPHATASE INCREASED [None]
  - COMPUTERISED TOMOGRAM ABNORMAL [None]
  - DEHYDRATION [None]
  - DIARRHOEA [None]
  - DYSPNOEA [None]
  - GAMMA-GLUTAMYLTRANSFERASE INCREASED [None]
  - HIV INFECTION [None]
  - HYPERLIPIDAEMIA [None]
  - HYPOKALAEMIA [None]
  - INFLAMMATION [None]
  - INTERSTITIAL LUNG DISEASE [None]
  - MALNUTRITION [None]
  - NAUSEA [None]
  - OXYGEN CONSUMPTION DECREASED [None]
  - PLEURAL EFFUSION [None]
  - PYREXIA [None]
  - RESPIRATORY ARREST [None]
  - RESPIRATORY RATE DECREASED [None]
  - STAPHYLOCOCCAL INFECTION [None]
  - TREATMENT NONCOMPLIANCE [None]
  - VOMITING [None]
